FAERS Safety Report 4938951-1 (Version None)
Quarter: 2006Q1

REPORT INFORMATION
  Report Type: 
  Country: None (occurrence: None)
  Receive Date: 20060309
  Receipt Date: 20030605
  Transmission Date: 20060701
  Serious: Yes (Life-Threatening, Hospitalization, Other)
  Sender: FDA-Public Use
  Company Number: US-MERCK-0306USA00806

PATIENT
  Age: 57 Year
  Sex: Female
  Weight: 138 kg

DRUGS (19)
  1. VIOXX [Suspect]
     Indication: PAIN
     Route: 048
     Dates: start: 19990701, end: 20000830
  2. VIOXX [Suspect]
     Indication: RHEUMATOID ARTHRITIS
     Route: 048
     Dates: start: 19990701, end: 20000830
  3. NITROGLYCERIN [Concomitant]
     Route: 055
  4. IMDUR [Concomitant]
     Route: 048
  5. HUMULIN N [Concomitant]
     Route: 058
  6. HUMULIN N [Concomitant]
     Route: 058
  7. CARDIZEM [Concomitant]
     Route: 048
  8. POTASSIUM (UNSPECIFIED) [Concomitant]
     Route: 048
  9. PEPCID [Concomitant]
     Route: 048
  10. AMBIEN [Concomitant]
     Route: 048
  11. PROPULSID [Concomitant]
     Route: 048
  12. ASPIRIN [Concomitant]
     Route: 048
  13. LIPITOR [Concomitant]
     Route: 048
  14. GLUCOPHAGE [Concomitant]
     Route: 048
  15. LASIX [Concomitant]
     Route: 048
     Dates: start: 19990701
  16. PROZAC [Concomitant]
     Route: 048
  17. SURFAK [Concomitant]
     Route: 048
  18. CHLORPHENIRAMINE MALEATE W/PHENYLEPHRINE HYDROCHLORIDE SYRUP [Concomitant]
     Route: 065
  19. CELEBREX [Concomitant]
     Route: 048

REACTIONS (51)
  - ABDOMINAL PAIN [None]
  - ABDOMINAL PAIN UPPER [None]
  - ACUTE MYOCARDIAL INFARCTION [None]
  - ANGINA UNSTABLE [None]
  - ANXIETY [None]
  - ARTHRALGIA [None]
  - ASTHENIA [None]
  - AUTONOMIC NEUROPATHY [None]
  - BACK PAIN [None]
  - BILIARY DILATATION [None]
  - CARDIAC FAILURE CONGESTIVE [None]
  - CATARACT [None]
  - CHEST PAIN [None]
  - CHOLELITHIASIS OBSTRUCTIVE [None]
  - CONSTIPATION [None]
  - CONVULSION [None]
  - CORONARY ARTERY DISEASE [None]
  - CORONARY ARTERY RESTENOSIS [None]
  - DEPRESSION [None]
  - DIABETES MELLITUS INSULIN-DEPENDENT [None]
  - DIABETIC RETINOPATHY [None]
  - DYSPNOEA [None]
  - EAR DISORDER [None]
  - FAECALOMA [None]
  - FALL [None]
  - GASTROENTERITIS [None]
  - GASTROENTERITIS VIRAL [None]
  - GASTROOESOPHAGEAL REFLUX DISEASE [None]
  - HAEMATOMA [None]
  - HEPATIC STEATOSIS [None]
  - HYPOAESTHESIA [None]
  - HYPOTENSION [None]
  - IMPAIRED GASTRIC EMPTYING [None]
  - INSOMNIA [None]
  - INTERVERTEBRAL DISC DEGENERATION [None]
  - LIGAMENT INJURY [None]
  - LUMBAR RADICULOPATHY [None]
  - MUSCLE SPASMS [None]
  - MUSCULOSKELETAL PAIN [None]
  - MYOCARDIAL ISCHAEMIA [None]
  - MYOSITIS [None]
  - NAUSEA [None]
  - OEDEMA PERIPHERAL [None]
  - PAIN IN EXTREMITY [None]
  - PARAESTHESIA [None]
  - PNEUMONIA [None]
  - PULMONARY OEDEMA [None]
  - RETINAL DETACHMENT [None]
  - ROTATOR CUFF SYNDROME [None]
  - TRANSIENT ISCHAEMIC ATTACK [None]
  - VOMITING [None]
